FAERS Safety Report 5679422-7 (Version None)
Quarter: 2008Q1

REPORT INFORMATION
  Report Type: 
  Country: None (occurrence: None)
  Receive Date: 20080325
  Receipt Date: 20080314
  Transmission Date: 20080703
  Serious: Yes (Other)
  Sender: FDA-Public Use
  Company Number: JP-PFIZER INC-2008024563

PATIENT
  Age: 70 Year
  Sex: Male

DRUGS (3)
  1. SOLU-MEDROL [Suspect]
     Indication: ASTHMA
     Dosage: DAILY DOSE:40MG
     Route: 042
     Dates: start: 20080307, end: 20080307
  2. SOLU-MEDROL [Suspect]
     Indication: NASOPHARYNGITIS
  3. MINOMYCIN [Concomitant]

REACTIONS (3)
  - BLOOD PRESSURE DECREASED [None]
  - ERYTHEMA [None]
  - LARYNGEAL OEDEMA [None]
